FAERS Safety Report 12887263 (Version 2)
Quarter: 2016Q4

REPORT INFORMATION
  Report Type: Spontaneous
  Country: US (occurrence: US)
  Receive Date: 20161026
  Receipt Date: 20161207
  Transmission Date: 20170207
  Serious: Yes (Hospitalization)
  Sender: FDA-Public Use
  Company Number: US-ALLERGAN-1672029US

PATIENT
  Age: 79 Year
  Sex: Female

DRUGS (2)
  1. ASPIRIN. [Concomitant]
     Active Substance: ASPIRIN
     Indication: CARDIAC DISORDER
     Dosage: UNK UNK, QD
     Route: 048
  2. RESTASIS [Suspect]
     Active Substance: CYCLOSPORINE
     Indication: DRY EYE
     Dosage: 1 GTT, UNK
     Route: 047

REACTIONS (8)
  - Gastritis viral [Recovered/Resolved]
  - Gastrooesophageal reflux disease [Not Recovered/Not Resolved]
  - Cataract [Recovered/Resolved]
  - Dysphagia [Not Recovered/Not Resolved]
  - Pneumonia [Recovered/Resolved]
  - Dehydration [Recovered/Resolved]
  - Arthritis [Not Recovered/Not Resolved]
  - Gout [Not Recovered/Not Resolved]

NARRATIVE: CASE EVENT DATE: 201610
